FAERS Safety Report 23512657 (Version 1)
Quarter: 2024Q1

REPORT INFORMATION
  Report Type: Spontaneous
  Country: US (occurrence: None)
  Receive Date: 20240209
  Receipt Date: 20240209
  Transmission Date: 20240410
  Serious: Yes (Life-Threatening, Disabling, Other)
  Sender: FDA-Public Use
  Company Number: None

PATIENT
  Age: 26 Year
  Sex: Male
  Weight: 79.2 kg

DRUGS (4)
  1. FLUOXETINE [Suspect]
     Active Substance: FLUOXETINE HYDROCHLORIDE
     Indication: Anxiety
     Dates: start: 20211018, end: 20230709
  2. FLUOXETINE [Suspect]
     Active Substance: FLUOXETINE HYDROCHLORIDE
     Indication: Depression
  3. PAROXETINE [Suspect]
     Active Substance: PAROXETINE
     Indication: Anxiety
     Dates: start: 20160217, end: 20210112
  4. PROZAC [Concomitant]
     Active Substance: FLUOXETINE HYDROCHLORIDE

REACTIONS (12)
  - Personality change [None]
  - Emotional disorder [None]
  - Sexual dysfunction [None]
  - Withdrawal syndrome [None]
  - Therapy cessation [None]
  - Akathisia [None]
  - Anhedonia [None]
  - Crying [None]
  - Dizziness [None]
  - Dissociation [None]
  - Cognitive disorder [None]
  - Impaired quality of life [None]

NARRATIVE: CASE EVENT DATE: 20230925
